FAERS Safety Report 4806635-6 (Version None)
Quarter: 2005Q4

REPORT INFORMATION
  Report Type: 
  Country: None (occurrence: None)
  Receive Date: 20051019
  Receipt Date: 20051003
  Transmission Date: 20060501
  Serious: Yes (Hospitalization, Other)
  Sender: FDA-Public Use
  Company Number: USA0508104662

PATIENT
  Age: 59 Year
  Sex: Female
  Weight: 50 kg

DRUGS (3)
  1. EVISTA [Suspect]
     Indication: OSTEOPOROSIS
     Dosage: 60 MG DAY
     Dates: start: 20000101
  2. MULTIVITAMINS NOS (MULTIVITAMINS NOS) [Concomitant]
  3. ASPIRIN [Concomitant]

REACTIONS (4)
  - CERVICAL CYST [None]
  - CERVICITIS [None]
  - ENDOMETRIAL CANCER STAGE I [None]
  - UTERINE LEIOMYOMA [None]
